FAERS Safety Report 10432894 (Version 1)
Quarter: 2014Q3

REPORT INFORMATION
  Report Type: Spontaneous
  Country: US (occurrence: None)
  Receive Date: 20140904
  Receipt Date: 20140904
  Transmission Date: 20150326
  Serious: Yes (Other)
  Sender: FDA-Public Use
  Company Number: None

PATIENT
  Age: 55 Year
  Sex: Female
  Weight: 54.43 kg

DRUGS (1)
  1. RISEDRONATE SOD [Suspect]
     Active Substance: RISEDRONATE SODIUM
     Dosage: DURATION: ONE MONTH, ONCE A MONTH

REACTIONS (2)
  - Pyrexia [None]
  - Fatigue [None]

NARRATIVE: CASE EVENT DATE: 20140718
